FAERS Safety Report 8289664-2 (Version None)
Quarter: 2012Q2

REPORT INFORMATION
  Report Type: 
  Country: None (occurrence: None)
  Receive Date: 20120417
  Receipt Date: 20120412
  Transmission Date: 20120825
  Serious: Yes (Hospitalization, Other)
  Sender: FDA-Public Use
  Company Number: CA-ABBOTT-11P-028-0873532-00

PATIENT
  Age: 52 Year
  Sex: Male

DRUGS (12)
  1. DEXAMETHASONE [Concomitant]
     Indication: PRODUCT USED FOR UNKNOWN INDICATION
     Route: 065
  2. AVASTIN [Suspect]
     Route: 042
     Dates: start: 20101228, end: 20110207
  3. AVASTIN [Suspect]
     Indication: GLIOBLASTOMA
     Route: 042
     Dates: start: 20101103, end: 20101201
  4. KEPPRA [Suspect]
     Indication: CONVULSION
  5. KEPPRA [Suspect]
     Indication: PROPHYLAXIS
  6. INSULIN [Concomitant]
     Indication: PRODUCT USED FOR UNKNOWN INDICATION
     Route: 065
  7. PREVACID [Concomitant]
     Indication: PRODUCT USED FOR UNKNOWN INDICATION
     Route: 065
  8. VALPROATE SODIUM [Suspect]
     Indication: PRODUCT USED FOR UNKNOWN INDICATION
     Route: 065
  9. DILANTIN [Suspect]
     Indication: PRODUCT USED FOR UNKNOWN INDICATION
     Route: 065
     Dates: end: 20101201
  10. DILANTIN [Suspect]
     Dates: start: 20101201
  11. ZYTRAM XL [Concomitant]
     Indication: PRODUCT USED FOR UNKNOWN INDICATION
     Route: 065
  12. KEPPRA [Concomitant]
     Indication: PRODUCT USED FOR UNKNOWN INDICATION
     Route: 065

REACTIONS (16)
  - ACTIVITIES OF DAILY LIVING IMPAIRED [None]
  - CONVULSION [None]
  - SOMNOLENCE [None]
  - TOXICITY TO VARIOUS AGENTS [None]
  - ANTICONVULSANT DRUG LEVEL INCREASED [None]
  - ABASIA [None]
  - APHASIA [None]
  - MOBILITY DECREASED [None]
  - CONFUSIONAL STATE [None]
  - LETHARGY [None]
  - MOOD SWINGS [None]
  - GENERAL PHYSICAL HEALTH DETERIORATION [None]
  - DRUG INTOLERANCE [None]
  - NASOPHARYNGITIS [None]
  - FATIGUE [None]
  - DYSARTHRIA [None]
